FAERS Safety Report 18299942 (Version 1)
Quarter: 2020Q3

REPORT INFORMATION
  Report Type: Spontaneous
  Country: US (occurrence: US)
  Receive Date: 20200922
  Receipt Date: 20200922
  Transmission Date: 20201103
  Serious: No
  Sender: FDA-Public Use
  Company Number: None

PATIENT
  Age: 33 Year
  Sex: Male
  Weight: 61.23 kg

DRUGS (2)
  1. GENERIC CLOBETASOL SPRAY [Suspect]
     Active Substance: CLOBETASOL
     Indication: PSORIASIS
  2. GENERIC CLOBETASOL CREAM [Suspect]
     Active Substance: CLOBETASOL

REACTIONS (5)
  - Loss of personal independence in daily activities [None]
  - Therapeutic response changed [None]
  - Pain [None]
  - Product substitution issue [None]
  - Pruritus [None]
